FAERS Safety Report 7459510-5 (Version None)
Quarter: 2011Q2

REPORT INFORMATION
  Report Type: 
  Country: None (occurrence: None)
  Receive Date: 20110505
  Receipt Date: 20110420
  Transmission Date: 20111010
  Serious: Yes (Other)
  Sender: FDA-Public Use
  Company Number: US-JNJFOC-20110410503

PATIENT
  Sex: Female
  Weight: 84.37 kg

DRUGS (3)
  1. FENTANYL-100 [Suspect]
     Indication: PAIN
     Route: 062
  2. DURAGESIC [Suspect]
     Indication: PAIN
     Route: 062
  3. DURAGESIC [Suspect]
     Indication: PRODUCT USED FOR UNKNOWN INDICATION
     Route: 062

REACTIONS (7)
  - DRUG INEFFECTIVE [None]
  - WEIGHT INCREASED [None]
  - WEIGHT DECREASED [None]
  - PAIN [None]
  - TYPE 2 DIABETES MELLITUS [None]
  - BODY HEIGHT DECREASED [None]
  - SKIN REACTION [None]
